FAERS Safety Report 10564625 (Version 1)
Quarter: 2014Q4

REPORT INFORMATION
  Report Type: Spontaneous
  Country: US (occurrence: US)
  Receive Date: 20141104
  Receipt Date: 20141104
  Transmission Date: 20150529
  Serious: No
  Sender: FDA-Public Use
  Company Number: US-MALLINCKRODT-T201402268

PATIENT
  Age: 31 Year
  Sex: Female
  Weight: 48.53 kg

DRUGS (2)
  1. OXYMORPHONE [Concomitant]
     Active Substance: OXYMORPHONE
     Indication: OSTEONECROSIS
     Dosage: 10 MG, QID PRN
     Route: 048
     Dates: start: 201308, end: 201405
  2. FENTANYL CITRATE. [Suspect]
     Active Substance: FENTANYL CITRATE
     Indication: OSTEONECROSIS
     Dosage: 200 ?G, Q 8HRS
     Route: 048
     Dates: start: 20140515, end: 201405

REACTIONS (5)
  - Drug ineffective [Unknown]
  - Gingival bleeding [Recovering/Resolving]
  - Application site laceration [Recovering/Resolving]
  - Product quality issue [Unknown]
  - Product use issue [Unknown]

NARRATIVE: CASE EVENT DATE: 20140515
